FAERS Safety Report 8215630 (Version 26)
Quarter: 2018Q2

REPORT INFORMATION
  Report Type: Report from Study
  Country: CA (occurrence: CA)
  Receive Date: 20111031
  Receipt Date: 20180612
  Transmission Date: 20180711
  Serious: Yes (Hospitalization, Other)
  Sender: FDA-Public Use
  Company Number: PHHY2011CA93418

PATIENT
  Age: 43 Year
  Sex: Female

DRUGS (9)
  1. SANDOSTATIN LAR DEPOT [Suspect]
     Active Substance: OCTREOTIDE ACETATE
     Indication: CARCINOID TUMOUR
     Dosage: 30 MG, QMO (EVERY 4 WEEKS)
     Route: 030
     Dates: start: 20020615
  2. ALDACTONE [Concomitant]
     Active Substance: SPIRONOLACTONE
     Indication: PRODUCT USED FOR UNKNOWN INDICATION
     Dosage: UNK
     Route: 065
  3. FENOFIBRATE MYLAN [Concomitant]
     Active Substance: FENOFIBRATE
     Indication: PRODUCT USED FOR UNKNOWN INDICATION
     Dosage: 200 MG, UNK
     Route: 065
  4. PULMICORT TURBUHALER [Concomitant]
     Active Substance: BUDESONIDE
     Indication: PRODUCT USED FOR UNKNOWN INDICATION
     Dosage: UNK
     Route: 065
  5. RITALIN [Suspect]
     Active Substance: METHYLPHENIDATE HYDROCHLORIDE
     Indication: ATTENTION DEFICIT/HYPERACTIVITY DISORDER
     Dosage: 10 MG, UNK
     Route: 065
  6. GADOLINIUM [Concomitant]
     Active Substance: GADOLINIUM
     Indication: PRODUCT USED FOR UNKNOWN INDICATION
     Route: 065
  7. DOSTINEX [Concomitant]
     Active Substance: CABERGOLINE
     Indication: PRODUCT USED FOR UNKNOWN INDICATION
     Dosage: UNK
     Route: 065
  8. METFORMIN [Concomitant]
     Active Substance: METFORMIN HYDROCHLORIDE
     Indication: PRODUCT USED FOR UNKNOWN INDICATION
     Dosage: UNK
     Route: 065
  9. OMEPRAZOLE. [Concomitant]
     Active Substance: OMEPRAZOLE
     Indication: PRODUCT USED FOR UNKNOWN INDICATION
     Dosage: UNK
     Route: 065

REACTIONS (35)
  - Hypoglycaemia [Unknown]
  - Swelling [Recovered/Resolved]
  - Hypothyroidism [Unknown]
  - Vitamin B12 decreased [Unknown]
  - Gingival disorder [Unknown]
  - Blood triglycerides increased [Unknown]
  - Hypoaesthesia [Unknown]
  - Fatigue [Unknown]
  - Depression [Unknown]
  - Wound [Unknown]
  - Blood pressure systolic increased [Unknown]
  - Weight increased [Unknown]
  - Pain in extremity [Recovered/Resolved]
  - Familial hypocalciuric hypercalcaemia [Unknown]
  - Menstruation irregular [Unknown]
  - Weight decreased [Recovering/Resolving]
  - Somnolence [Unknown]
  - Dry skin [Unknown]
  - Blood pressure increased [Unknown]
  - Migraine [Unknown]
  - Contusion [Unknown]
  - Movement disorder [Unknown]
  - Abdominal pain [Unknown]
  - Rheumatoid arthritis [Unknown]
  - Skin lesion [Unknown]
  - Animal bite [Unknown]
  - Limb injury [Recovered/Resolved]
  - Blood glucose increased [Recovering/Resolving]
  - Back pain [Unknown]
  - Coordination abnormal [Unknown]
  - General physical health deterioration [Unknown]
  - Hyperglycaemia [Unknown]
  - Fall [Unknown]
  - Malaise [Unknown]
  - Stress [Unknown]

NARRATIVE: CASE EVENT DATE: 20130327
